FAERS Safety Report 7231781-X (Version None)
Quarter: 2011Q1

REPORT INFORMATION
  Report Type: 
  Country: None (occurrence: None)
  Receive Date: 20110118
  Receipt Date: 20110112
  Transmission Date: 20110831
  Serious: Yes (Death)
  Sender: FDA-Public Use
  Company Number: AU-ASTRAZENECA-2011SE02157

PATIENT

DRUGS (3)
  1. SEROQUEL [Suspect]
     Dosage: ESTIMATED 30 TABLET
     Route: 048
  2. SERTRALINE [Concomitant]
  3. MIRTAZAPINE [Concomitant]

REACTIONS (2)
  - OVERDOSE [None]
  - DEATH [None]
